FAERS Safety Report 6042145-9 (Version None)
Quarter: 2009Q1

REPORT INFORMATION
  Report Type: 
  Country: None (occurrence: None)
  Receive Date: 20090116
  Receipt Date: 20090109
  Transmission Date: 20090719
  Serious: Yes (Other)
  Sender: FDA-Public Use
  Company Number: PHBS2009BR00475

PATIENT
  Age: 8 Year
  Sex: Male

DRUGS (1)
  1. IMIPRAMINE [Suspect]
     Indication: ABNORMAL BEHAVIOUR

REACTIONS (11)
  - ANXIETY [None]
  - ATTENTION DEFICIT/HYPERACTIVITY DISORDER [None]
  - BIPOLAR DISORDER [None]
  - CONDITION AGGRAVATED [None]
  - DISTRACTIBILITY [None]
  - HALLUCINATION [None]
  - LEARNING DISORDER [None]
  - MEMORY IMPAIRMENT [None]
  - MOOD SWINGS [None]
  - PSYCHOMOTOR HYPERACTIVITY [None]
  - PSYCHOTIC DISORDER [None]
